FAERS Safety Report 8279282-4 (Version None)
Quarter: 2012Q2

REPORT INFORMATION
  Report Type: 
  Country: None (occurrence: None)
  Receive Date: 20120412
  Receipt Date: 20120409
  Transmission Date: 20120825
  Serious: Yes (Death)
  Sender: FDA-Public Use
  Company Number: PHHY2012US030740

PATIENT
  Age: 96 Year
  Sex: Female

DRUGS (1)
  1. BUFFERIN [Suspect]
     Indication: PAIN
     Dosage: 2 DF, UNK
     Route: 048

REACTIONS (3)
  - OSTEOARTHRITIS [None]
  - DEMENTIA [None]
  - DEATH [None]
